FAERS Safety Report 12351567 (Version 2)
Quarter: 2016Q2

REPORT INFORMATION
  Report Type: Spontaneous
  Country: US (occurrence: US)
  Receive Date: 20160510
  Receipt Date: 20160620
  Transmission Date: 20160815
  Serious: Yes (Death, Hospitalization)
  Sender: FDA-Public Use
  Company Number: US-SMITH AND NEPHEW, INC-2016SMT00368

PATIENT
  Age: 77 Year
  Sex: Male
  Weight: 86.17 kg

DRUGS (1)
  1. REGRANEX [Suspect]
     Active Substance: BECAPLERMIN
     Indication: WOUND
     Dosage: UNK UNK, ONCE
     Dates: start: 201604, end: 201604

REACTIONS (4)
  - Cardiac disorder [Unknown]
  - Sepsis [Fatal]
  - Fatigue [Unknown]
  - Mobility decreased [Unknown]

NARRATIVE: CASE EVENT DATE: 201604
